FAERS Safety Report 6749517-5 (Version None)
Quarter: 2010Q2

REPORT INFORMATION
  Report Type: 
  Country: None (occurrence: None)
  Receive Date: 20100601
  Receipt Date: 20100524
  Transmission Date: 20101027
  Serious: Yes (Hospitalization)
  Sender: FDA-Public Use
  Company Number: US-SANOFI-AVENTIS-2010SA030112

PATIENT
  Sex: Male
  Weight: 74.83 kg

DRUGS (15)
  1. PLAVIX [Suspect]
     Route: 048
     Dates: start: 19990101, end: 20060101
  2. PLAVIX [Suspect]
     Route: 048
  3. PREVACID [Concomitant]
  4. PRILOSEC [Concomitant]
  5. KENALOG [Concomitant]
     Dates: start: 20091101
  6. LIPITOR [Concomitant]
     Route: 065
     Dates: end: 20100501
  7. ASPIRIN [Concomitant]
     Route: 048
  8. FISH OIL [Concomitant]
     Route: 048
  9. TAMSULOSIN HYDROCHLORIDE [Concomitant]
  10. CALCIUM CARBONATE [Concomitant]
     Route: 048
  11. HYZAAR [Concomitant]
     Dosage: 50/12.5MG
     Route: 048
  12. MULTI-VITAMINS [Concomitant]
  13. FOLIC ACID/VITAMIN B12 NOS [Concomitant]
  14. DIGOXIN [Concomitant]
     Route: 048
  15. AMIODARONE HYDROCHLORIDE [Concomitant]
     Route: 048

REACTIONS (5)
  - BACK PAIN [None]
  - CONTUSION [None]
  - MUSCULAR WEAKNESS [None]
  - ROTATOR CUFF SYNDROME [None]
  - SWELLING FACE [None]
